FAERS Safety Report 18176557 (Version 2)
Quarter: 2020Q4

REPORT INFORMATION
  Report Type: Spontaneous
  Country: US (occurrence: US)
  Receive Date: 20200820
  Receipt Date: 20201103
  Transmission Date: 20210113
  Serious: Yes (Other)
  Sender: FDA-Public Use
  Company Number: US-JNJFOC-20200815429

PATIENT
  Sex: Female
  Weight: 59.02 kg

DRUGS (11)
  1. NEURONTIN [Concomitant]
     Active Substance: GABAPENTIN
     Indication: FOOT FRACTURE
  2. MORPHINE [Concomitant]
     Active Substance: MORPHINE
     Route: 065
  3. PERCOCET [Concomitant]
     Active Substance: ACETAMINOPHEN\OXYCODONE HYDROCHLORIDE
     Indication: SPINAL FRACTURE
  4. XANAX [Concomitant]
     Active Substance: ALPRAZOLAM
     Indication: FOOT FRACTURE
  5. NEURONTIN [Concomitant]
     Active Substance: GABAPENTIN
     Indication: BACK PAIN
  6. NEURONTIN [Concomitant]
     Active Substance: GABAPENTIN
     Indication: SPINAL FRACTURE
  7. XANAX [Concomitant]
     Active Substance: ALPRAZOLAM
     Indication: BACK PAIN
  8. XANAX [Concomitant]
     Active Substance: ALPRAZOLAM
     Indication: SPINAL FRACTURE
  9. DURAGESIC [Suspect]
     Active Substance: FENTANYL
     Indication: PAIN
     Route: 061
  10. PERCOCET [Concomitant]
     Active Substance: ACETAMINOPHEN\OXYCODONE HYDROCHLORIDE
     Indication: BACK PAIN
  11. PERCOCET [Concomitant]
     Active Substance: ACETAMINOPHEN\OXYCODONE HYDROCHLORIDE
     Indication: FOOT FRACTURE

REACTIONS (4)
  - Thrombosis [Unknown]
  - Anger [Unknown]
  - Back pain [Unknown]
  - Spinal fracture [Unknown]

NARRATIVE: CASE EVENT DATE: 2013
